FAERS Safety Report 7021217-6 (Version None)
Quarter: 2010Q3

REPORT INFORMATION
  Report Type: 
  Country: None (occurrence: None)
  Receive Date: 20100929
  Receipt Date: 20100920
  Transmission Date: 20110219
  Serious: Yes (Other)
  Sender: FDA-Public Use
  Company Number: US-PFIZER INC-2010119295

PATIENT
  Sex: Male
  Weight: 94.331 kg

DRUGS (17)
  1. ZOLOFT [Suspect]
     Indication: VISUAL IMPAIRMENT
     Dosage: TWO TABLETS DAILY
     Route: 048
  2. ZOLOFT [Suspect]
     Indication: HEAD DISCOMFORT
  3. GLUCOTROL [Suspect]
     Indication: BLOOD GLUCOSE ABNORMAL
     Dosage: UNK MG, 2X/DAY
     Route: 048
  4. GABAPENTIN [Concomitant]
     Indication: NERVOUS SYSTEM DISORDER
     Dosage: 800 MG, 3X/DAY
     Route: 048
  5. METHOCARBAMOL [Concomitant]
     Indication: MUSCLE SPASMS
     Dosage: 750 MG, 2X/DAY
     Route: 048
  6. FLOMAX [Concomitant]
     Indication: URINARY INCONTINENCE
     Dosage: 0.4 MG, 1X/DAY
     Route: 048
  7. ACETYLSALICYLIC ACID [Concomitant]
     Indication: CARDIAC DISORDER
     Dosage: 81 MG, 1X/DAY
     Route: 048
  8. LISINOPRIL AND HYDROCHLOROTHIAZIDE [Concomitant]
     Indication: HYPERTENSION
     Dosage: UNK MG, 2X/DAY
     Route: 048
  9. BROMOCRIPTINE [Concomitant]
     Indication: ABDOMINAL DISCOMFORT
     Dosage: 2.5 MG, ONE AND A HALF TABLETS, 2X/DAY
     Route: 048
  10. TRAMADOL HYDROCHLORIDE [Concomitant]
     Indication: BACK PAIN
     Dosage: 50 MG, UNK
     Route: 048
  11. VITAMIN E [Concomitant]
     Indication: SUPPLEMENTATION THERAPY
     Dosage: 400 IU, 3X/DAY
     Route: 048
  12. ASCORBIC ACID [Concomitant]
     Indication: SUPPLEMENTATION THERAPY
     Dosage: 500 MG, 4X/DAY
     Route: 048
  13. ZINC GLUCONATE [Concomitant]
     Indication: SUPPLEMENTATION THERAPY
     Dosage: 50 MG, 3X/DAY
     Route: 048
  14. METOPROLOL [Concomitant]
     Indication: HYPERTENSION
     Dosage: 50 MG, UNK
     Route: 048
  15. NITROSTAT [Concomitant]
     Indication: ANGINA PECTORIS
     Dosage: UNK MG, AS NEEDED
     Route: 048
  16. CLONAZEPAM [Concomitant]
     Indication: NERVOUS SYSTEM DISORDER
     Dosage: 1 MG, 1X/DAY
     Route: 048
  17. METFORMIN [Concomitant]
     Indication: BLOOD GLUCOSE ABNORMAL
     Dosage: 1000 MG, 2X/DAY
     Route: 048

REACTIONS (1)
  - HAEMORRHAGE [None]
